FAERS Safety Report 18718228 (Version 1)
Quarter: 2021Q1

REPORT INFORMATION
  Report Type: Spontaneous
  Country: US (occurrence: US)
  Receive Date: 20210108
  Receipt Date: 20210108
  Transmission Date: 20210419
  Serious: No
  Sender: FDA-Public Use
  Company Number: US-009507513-2012USA009767

PATIENT
  Age: 50 Year
  Sex: Female
  Weight: 99.77 kg

DRUGS (5)
  1. REMERON [Suspect]
     Active Substance: MIRTAZAPINE
     Indication: SLEEP APNOEA SYNDROME
     Dosage: 1 1/2 TABLET EVERY NIGHT
     Route: 048
     Dates: start: 20001214, end: 20101214
  2. REMERON SOLTAB [Suspect]
     Active Substance: MIRTAZAPINE
     Indication: SLEEP APNOEA SYNDROME
  3. REMERON [Suspect]
     Active Substance: MIRTAZAPINE
     Indication: DEPRESSION
     Dosage: 1 1/2 TABLET EVERY NIGHT
     Route: 048
  4. REMERON SOLTAB [Suspect]
     Active Substance: MIRTAZAPINE
     Indication: DEPRESSION
     Dosage: 1 1/2 TABLET EVERY NIGHT
     Route: 048
  5. ATIVAN [Concomitant]
     Active Substance: LORAZEPAM
     Dosage: 3 DOSAGE FORM, QD (AT NIGHT)

REACTIONS (6)
  - Allergic reaction to excipient [Recovering/Resolving]
  - Crying [Recovering/Resolving]
  - Weight increased [Recovering/Resolving]
  - Wrong technique in product usage process [Unknown]
  - Malaise [Recovering/Resolving]
  - Product use in unapproved indication [Unknown]

NARRATIVE: CASE EVENT DATE: 200012
